FAERS Safety Report 25841312 (Version 2)
Quarter: 2025Q4

REPORT INFORMATION
  Report Type: Spontaneous
  Country: EU (occurrence: EU)
  Receive Date: 20250924
  Receipt Date: 20251002
  Transmission Date: 20260118
  Serious: Yes (Death, Life-Threatening, Hospitalization, Other)
  Sender: PFIZER
  Company Number: EU-PFIZER INC-202500187281

PATIENT
  Sex: Male
  Weight: 3.6 kg

DRUGS (1)
  1. SIROLIMUS [Suspect]
     Active Substance: SIROLIMUS
     Indication: Tuberous sclerosis complex
     Dosage: UNK
     Route: 064

REACTIONS (3)
  - Toxicity to various agents [Fatal]
  - Capillary leak syndrome [Fatal]
  - Maternal exposure during pregnancy [Unknown]
